FAERS Safety Report 5851552-6 (Version None)
Quarter: 2008Q3

REPORT INFORMATION
  Report Type: 
  Country: None (occurrence: None)
  Receive Date: 20080820
  Receipt Date: 20080808
  Transmission Date: 20090109
  Serious: Yes (Other)
  Sender: FDA-Public Use
  Company Number: GB-ROCHE-562579

PATIENT
  Sex: Female
  Weight: 4.1 kg

DRUGS (2)
  1. PEGASYS [Suspect]
     Route: 064
     Dates: start: 20070131, end: 20070718
  2. COPEGUS [Suspect]
     Route: 064
     Dates: start: 20070131, end: 20070718

REACTIONS (2)
  - CONGENITAL CYST [None]
  - MATERNAL DRUGS AFFECTING FOETUS [None]
